FAERS Safety Report 5934034-2 (Version None)
Quarter: 2008Q4

REPORT INFORMATION
  Report Type: 
  Country: None (occurrence: None)
  Receive Date: 20081029
  Receipt Date: 20081023
  Transmission Date: 20090506
  Serious: Yes (Hospitalization)
  Sender: FDA-Public Use
  Company Number: JP-ASTRAZENECA-2008AP08302

PATIENT
  Age: 79 Year
  Sex: Male

DRUGS (8)
  1. CRESTOR [Suspect]
     Indication: HYPERCHOLESTEROLAEMIA
     Route: 048
     Dates: start: 20080905, end: 20080922
  2. PLAVIX [Suspect]
     Route: 048
     Dates: start: 20080903, end: 20080922
  3. RENIVACE [Suspect]
     Route: 048
     Dates: start: 20080903, end: 20080922
  4. LANSOPRAZOLE [Suspect]
     Route: 048
     Dates: start: 20080906, end: 20080922
  5. ASPIRIN [Concomitant]
     Route: 048
     Dates: start: 20080903
  6. LASIX [Concomitant]
     Route: 048
     Dates: start: 20080911
  7. SIGMART [Concomitant]
     Route: 048
  8. PREDONINE [Concomitant]
     Route: 048

REACTIONS (1)
  - INTERSTITIAL LUNG DISEASE [None]
